FAERS Safety Report 21557474 (Version 1)
Quarter: 2022Q4

REPORT INFORMATION
  Report Type: Spontaneous
  Country: IN (occurrence: IN)
  Receive Date: 20221105
  Receipt Date: 20221105
  Transmission Date: 20230112
  Serious: Yes (Hospitalization, Other)
  Sender: FDA-Public Use
  Company Number: IN-MLMSERVICE-20221019-3863180-1

PATIENT
  Age: 67 Year
  Sex: Male

DRUGS (3)
  1. FLUOROURACIL [Suspect]
     Active Substance: FLUOROURACIL
     Indication: Squamous cell carcinoma of the hypopharynx
     Dosage: 5 FU (820 MG D1-D5)
  2. CISPLATIN [Suspect]
     Active Substance: CISPLATIN
     Indication: Squamous cell carcinoma of the hypopharynx
     Dosage: CISPLATIN (30 MG D1-D5)
  3. PACLITAXEL [Suspect]
     Active Substance: PACLITAXEL
     Indication: Squamous cell carcinoma of the hypopharynx
     Dosage: NANO PACLITAXEL (100 MG D1)

REACTIONS (1)
  - Febrile neutropenia [Recovered/Resolved]
